FAERS Safety Report 7408878-4 (Version None)
Quarter: 2011Q2

REPORT INFORMATION
  Report Type: 
  Country: None (occurrence: None)
  Receive Date: 20110412
  Receipt Date: 20110408
  Transmission Date: 20111010
  Serious: Yes (Death)
  Sender: FDA-Public Use
  Company Number: PHHY2011NL29485

PATIENT
  Sex: Male

DRUGS (2)
  1. ZOMETA [Suspect]
     Indication: PROSTATE CANCER METASTATIC
     Dosage: 4 MG,PER 12 WEEKS
     Dates: start: 20100801
  2. ZOMETA [Suspect]
     Dosage: 4 MG, EVERY 12 WEEKS
     Dates: start: 20110124

REACTIONS (1)
  - DEATH [None]
